FAERS Safety Report 21298311 (Version 1)
Quarter: 2022Q3

REPORT INFORMATION
  Report Type: Spontaneous
  Country: US (occurrence: None)
  Receive Date: 20220905
  Receipt Date: 20220905
  Transmission Date: 20221027
  Serious: Yes (Other)
  Sender: FDA-Public Use
  Company Number: None

PATIENT
  Age: 69 Year
  Sex: Female

DRUGS (4)
  1. SODIUM CHLORIDE [Suspect]
     Active Substance: SODIUM CHLORIDE
     Indication: Hypothyroidism
     Dosage: FREQUENCY : AS NEEDED;?
     Route: 048
     Dates: start: 20190201
  2. SODIUM CHLORIDE [Suspect]
     Active Substance: SODIUM CHLORIDE
     Indication: COVID-19 prophylaxis
  3. CHLORINE DIOXIDE [Suspect]
     Active Substance: CHLORINE DIOXIDE
  4. VITAMINS [Concomitant]
     Active Substance: VITAMINS

REACTIONS (3)
  - Throat irritation [None]
  - Asthenia [None]
  - Feeling cold [None]

NARRATIVE: CASE EVENT DATE: 20220904
